FAERS Safety Report 13456717 (Version 1)
Quarter: 2017Q2

REPORT INFORMATION
  Report Type: Report from Study
  Country: AU (occurrence: AU)
  Receive Date: 20170419
  Receipt Date: 20170419
  Transmission Date: 20170830
  Serious: Yes (Other)
  Sender: FDA-Public Use
  Company Number: AU-MYLANLABS-2017M1023478

PATIENT

DRUGS (2)
  1. QUINAGOLIDE [Suspect]
     Active Substance: QUINAGOLIDE
     Indication: PROLACTIN-PRODUCING PITUITARY TUMOUR
     Dosage: 75MCG DAILY
     Route: 065
  2. BROMOCRIPTINE [Suspect]
     Active Substance: BROMOCRIPTINE
     Indication: PROLACTIN-PRODUCING PITUITARY TUMOUR
     Dosage: 1.25-2.5MG, TWICE DAILY
     Route: 065

REACTIONS (2)
  - Testotoxicosis [Recovering/Resolving]
  - Hypersexuality [Recovering/Resolving]
